FAERS Safety Report 25804471 (Version 4)
Quarter: 2025Q4

REPORT INFORMATION
  Report Type: Report from Study
  Country: IN (occurrence: IN)
  Receive Date: 20250915
  Receipt Date: 20251215
  Transmission Date: 20260117
  Serious: Yes (Other)
  Sender: NOVARTIS
  Company Number: IN-002147023-NVSC2025IN083912

PATIENT
  Age: 53 Year
  Sex: Female
  Weight: 63.3 kg

DRUGS (4)
  1. RIBOCICLIB [Suspect]
     Active Substance: RIBOCICLIB
     Indication: Breast cancer
     Dosage: 600 MG, QD
     Route: 048
     Dates: start: 20250322
  2. RIBOCICLIB [Suspect]
     Active Substance: RIBOCICLIB
     Indication: Hormone receptor positive HER2 negative breast cancer
     Dosage: 600 MG, QD
     Route: 048
     Dates: start: 20250323
  3. RIBOCICLIB [Suspect]
     Active Substance: RIBOCICLIB
     Indication: Breast cancer metastatic
     Dosage: 400 MG, QD
     Route: 050
  4. RIBOCICLIB [Suspect]
     Active Substance: RIBOCICLIB
     Dosage: 400 MG, QD
     Route: 048

REACTIONS (32)
  - Electrocardiogram QT interval abnormal [Unknown]
  - Metastases to lymph nodes [Unknown]
  - Metastases to lung [Unknown]
  - Metastases to liver [Unknown]
  - Metastases to bone [Unknown]
  - Metastases to central nervous system [Unknown]
  - Pulmonary mass [Unknown]
  - Pleural effusion [Unknown]
  - Pleural thickening [Unknown]
  - Blood urea abnormal [Unknown]
  - Differential white blood cell count abnormal [Unknown]
  - Haemoglobin abnormal [Unknown]
  - Platelet count abnormal [Unknown]
  - Mean platelet volume abnormal [Unknown]
  - Red blood cell count abnormal [Unknown]
  - Haematocrit abnormal [Unknown]
  - Mean cell haemoglobin concentration abnormal [Unknown]
  - Mean cell volume abnormal [Unknown]
  - Red cell distribution width abnormal [Unknown]
  - White blood cell count abnormal [Unknown]
  - Body mass index increased [Unknown]
  - Blood albumin abnormal [Unknown]
  - Blood chloride abnormal [Unknown]
  - Laboratory test abnormal [Unknown]
  - Blood pressure decreased [Unknown]
  - Carbohydrate antigen 15-3 increased [Unknown]
  - Fatigue [Unknown]
  - Dry skin [Unknown]
  - Pruritus [Unknown]
  - Deficiency anaemia [Unknown]
  - Drug intolerance [Unknown]
  - Cough [Unknown]

NARRATIVE: CASE EVENT DATE: 20250514
